FAERS Safety Report 7190503-1 (Version None)
Quarter: 2010Q4

REPORT INFORMATION
  Report Type: 
  Country: None (occurrence: None)
  Receive Date: 20101223
  Receipt Date: 20101216
  Transmission Date: 20110411
  Serious: Yes (Hospitalization, Other)
  Sender: FDA-Public Use
  Company Number: US-JNJFOC-20101108048

PATIENT
  Sex: Female
  Weight: 72.58 kg

DRUGS (10)
  1. FENTANYL-100 [Suspect]
     Indication: ARTHRALGIA
     Dosage: 100 UG/HR X 2
     Route: 062
  2. FENTANYL-100 [Suspect]
     Dosage: 100 UG/HR X 2; NDC#: 0781-7244-55
     Route: 062
  3. OXYCODONE HCL AND ACETAMINOPHEN [Concomitant]
     Indication: PAIN
     Dosage: 10/325
     Route: 048
  4. DIFLUCAN [Concomitant]
     Indication: ANTIFUNGAL PROPHYLAXIS
     Route: 048
  5. SYNTHROID [Concomitant]
     Indication: THYROID DISORDER
     Route: 048
  6. SYNTHROID [Concomitant]
     Route: 048
  7. METOPROLOL TARTRATE [Concomitant]
     Indication: BLOOD PRESSURE
     Route: 048
  8. SULFAMETHOXAZOL AND TRIMETHOPRIM [Concomitant]
     Indication: INFECTION
     Dosage: 800/160
     Route: 048
  9. PHENYTOIN SODIUM CAP [Concomitant]
     Indication: CONVULSION PROPHYLAXIS
     Route: 048
  10. TEMAZEPAM [Concomitant]
     Indication: SLEEP DISORDER
     Route: 048

REACTIONS (11)
  - ABNORMAL LOSS OF WEIGHT [None]
  - ARTHRALGIA [None]
  - CATARACT [None]
  - CYSTITIS [None]
  - DRUG DIVERSION [None]
  - DRUG INEFFECTIVE [None]
  - FALL [None]
  - MALAISE [None]
  - PHOTOPSIA [None]
  - PRODUCT PACKAGING QUANTITY ISSUE [None]
  - UPPER LIMB FRACTURE [None]
